FAERS Safety Report 15179193 (Version 1)
Quarter: 2018Q3

REPORT INFORMATION
  Report Type: Spontaneous
  Country: JP (occurrence: JP)
  Receive Date: 20180723
  Receipt Date: 20180723
  Transmission Date: 20181010
  Serious: Yes (Other)
  Sender: FDA-Public Use
  Company Number: JP-ROCHE-2158065

PATIENT
  Age: 68 Year
  Sex: Female

DRUGS (3)
  1. LUCENTIS [Suspect]
     Active Substance: RANIBIZUMAB
     Dosage: 0.05 MG, UNK
     Route: 031
  2. LUCENTIS [Suspect]
     Active Substance: RANIBIZUMAB
     Dosage: 0.05 MG, UNK
     Route: 031
  3. LUCENTIS [Suspect]
     Active Substance: RANIBIZUMAB
     Indication: RETINAL VEIN OCCLUSION
     Dosage: 0.05 MG, UNK
     Route: 031

REACTIONS (4)
  - Retinal vein occlusion [Unknown]
  - Disease progression [Unknown]
  - Macular oedema [Recovering/Resolving]
  - Visual acuity reduced [Unknown]
